FAERS Safety Report 6551921-5 (Version None)
Quarter: 2010Q1

REPORT INFORMATION
  Report Type: 
  Country: None (occurrence: None)
  Receive Date: 20100126
  Receipt Date: 20100114
  Transmission Date: 20100710
  Serious: Yes (Other)
  Sender: FDA-Public Use
  Company Number: US-ELI_LILLY_AND_COMPANY-US200911007183

PATIENT
  Age: 46 Year
  Sex: Female

DRUGS (8)
  1. CYMBALTA [Suspect]
     Indication: MAJOR DEPRESSION
     Dosage: 60 MG, DAILY (1/D)
     Route: 048
     Dates: start: 20060301
  2. CYMBALTA [Suspect]
     Dosage: 90 MG, DAILY (1/D)
     Route: 065
     Dates: end: 20090301
  3. CYMBALTA [Suspect]
     Dosage: 120 MG, UNKNOWN
     Route: 048
     Dates: start: 20090301, end: 20091101
  4. STRATTERA [Suspect]
     Indication: DEPRESSION
     Dosage: 25 MG, DAILY (1/D)
     Route: 065
     Dates: start: 20091119
  5. PRISTIQ [Concomitant]
     Dosage: 50 MG, UNKNOWN
     Route: 065
     Dates: start: 20091101, end: 20091101
  6. XANAX [Concomitant]
     Indication: ANXIETY
     Dosage: 0.25 MG, OTHER
     Route: 048
  7. IRON [Concomitant]
     Indication: MINERAL SUPPLEMENTATION
     Dosage: UNK, UNKNOWN
     Route: 065
  8. TAMOXIFEN CITRATE [Concomitant]
     Indication: BREAST CANCER
     Dosage: UNK, UNKNOWN
     Route: 065

REACTIONS (7)
  - BREAST CANCER [None]
  - CRYING [None]
  - DIZZINESS [None]
  - LAZINESS [None]
  - NAUSEA [None]
  - OFF LABEL USE [None]
  - VOMITING [None]
